FAERS Safety Report 4806725-8 (Version None)
Quarter: 2005Q4

REPORT INFORMATION
  Report Type: 
  Country: None (occurrence: None)
  Receive Date: 20051019
  Receipt Date: 20051007
  Transmission Date: 20060501
  Serious: Yes (Death, Life-Threatening, Hospitalization)
  Sender: FDA-Public Use
  Company Number: HQWYE930107OCT05

PATIENT
  Age: 78 Year
  Sex: Female

DRUGS (7)
  1. CORDARONE [Suspect]
     Indication: ATRIAL FIBRILLATION
     Dosage: 200 MG TABLET ORAL
     Route: 048
  2. CORDARONE [Suspect]
     Indication: ATRIAL FLUTTER
     Dosage: 200 MG TABLET ORAL
     Route: 048
  3. ALDALIX                     (FUROSEMIDE/SPIRONOLACTONE) [Suspect]
     Indication: CARDIAC FAILURE
     Dosage: 20 MG CAPSULE ORAL
     Route: 048
  4. DIGOXIN [Suspect]
     Indication: TACHYCARDIA
  5. GLUCOPHAGE               (METFORIM HYDROCHLORIDE) [Suspect]
     Indication: DIABETES MELLITUS
     Dosage: ORAL
     Route: 048
  6. LEVOTHYROXINE SODIUM [Suspect]
     Indication: HYPOTHYROIDISM
     Dosage: ORAL
     Route: 048
  7. SINTROM [Suspect]
     Indication: PROPHYLAXIS
     Dosage: 4 MG TABLET ORAL
     Route: 048

REACTIONS (10)
  - ANAEMIA [None]
  - BACTERIAL INFECTION [None]
  - HAEMODIALYSIS [None]
  - INTENTIONAL DRUG MISUSE [None]
  - LACTIC ACIDOSIS [None]
  - MULTI-ORGAN FAILURE [None]
  - OESOPHAGITIS HAEMORRHAGIC [None]
  - OVERDOSE [None]
  - RENAL FAILURE ACUTE [None]
  - SHOCK [None]
